FAERS Safety Report 9819835 (Version 1)
Quarter: 2013Q4

REPORT INFORMATION
  Report Type: Spontaneous
  Country: US (occurrence: None)
  Receive Date: 20131223
  Receipt Date: 20131223
  Transmission Date: 20140711
  Serious: No
  Sender: FDA-Public Use
  Company Number: 220365

PATIENT
  Sex: Male

DRUGS (1)
  1. PICATO [Suspect]
     Indication: ACTINIC KERATOSIS
     Dosage: 1 IN 1 D, DERMAL
     Dates: start: 20130127, end: 20130129

REACTIONS (6)
  - Application site scab [None]
  - Eyelid oedema [None]
  - Application site swelling [None]
  - Drug administered at inappropriate site [None]
  - Drug administration error [None]
  - Eye swelling [None]
